FAERS Safety Report 4613438-4 (Version None)
Quarter: 2005Q1

REPORT INFORMATION
  Report Type: 
  Country: None (occurrence: None)
  Receive Date: 20050317
  Receipt Date: 20050317
  Transmission Date: 20050727
  Serious: Yes (Other)
  Sender: FDA-Public Use
  Company Number: None

PATIENT
  Age: 42 Year
  Sex: Female
  Weight: 82.5547 kg

DRUGS (2)
  1. FENTANYL [Suspect]
     Indication: PAIN
     Dosage: 100 MCG  TWO Q 2 D; 50 MCG ONE Q 2 D
     Dates: start: 20030601
  2. FENTANYL [Suspect]
     Indication: RADICULOPATHY
     Dosage: 100 MCG  TWO Q 2 D; 50 MCG ONE Q 2 D
     Dates: start: 20030601

REACTIONS (4)
  - BACK PAIN [None]
  - PAIN [None]
  - PHARMACEUTICAL PRODUCT COMPLAINT [None]
  - RADICULOPATHY [None]
